FAERS Safety Report 6238163-8 (Version None)
Quarter: 2009Q2

REPORT INFORMATION
  Report Type: 
  Country: None (occurrence: None)
  Receive Date: 20090617
  Receipt Date: 20090617
  Transmission Date: 20091009
  Serious: No
  Sender: FDA-Public Use
  Company Number: None

PATIENT
  Sex: Male
  Weight: 19.9583 kg

DRUGS (1)
  1. SINGULAIR [Suspect]
     Indication: RHINITIS ALLERGIC
     Dosage: 4 MG. QD PO
     Route: 048
     Dates: start: 20090512, end: 20090611

REACTIONS (3)
  - AGGRESSION [None]
  - ANXIETY [None]
  - SUICIDAL IDEATION [None]
